FAERS Safety Report 13964409 (Version 1)
Quarter: 2017Q3

REPORT INFORMATION
  Report Type: Spontaneous
  Country: IT (occurrence: IT)
  Receive Date: 20170913
  Receipt Date: 20170913
  Transmission Date: 20171128
  Serious: Yes (Hospitalization)
  Sender: FDA-Public Use
  Company Number: IT-ELI_LILLY_AND_COMPANY-IT201709002875

PATIENT
  Age: 74 Year
  Sex: Male

DRUGS (4)
  1. FORSTEO 250UG/ML [Suspect]
     Active Substance: TERIPARATIDE
     Indication: PRODUCT USED FOR UNKNOWN INDICATION
     Dosage: UNK, UNKNOWN
     Route: 065
     Dates: start: 201703
  2. CALCIUM                            /07357001/ [Concomitant]
     Indication: PRODUCT USED FOR UNKNOWN INDICATION
  3. EUTIROX [Concomitant]
     Active Substance: LEVOTHYROXINE SODIUM
     Indication: PRODUCT USED FOR UNKNOWN INDICATION
  4. THYME OIL [Concomitant]
     Active Substance: THYME
     Indication: PRODUCT USED FOR UNKNOWN INDICATION

REACTIONS (1)
  - Sternal fracture [Unknown]

NARRATIVE: CASE EVENT DATE: 20170904
